FAERS Safety Report 13434184 (Version 1)
Quarter: 2017Q2

REPORT INFORMATION
  Report Type: Report from Study
  Country: ZA (occurrence: ZA)
  Receive Date: 20170412
  Receipt Date: 20170412
  Transmission Date: 20170830
  Serious: Yes (Hospitalization)
  Sender: FDA-Public Use
  Company Number: ZA-SA-2017SA059328

PATIENT
  Age: 31 Year
  Sex: Female

DRUGS (25)
  1. RIFAMPICIN [Suspect]
     Active Substance: RIFAMPIN
     Indication: DRUG PROVOCATION TEST
     Route: 048
  2. ISONIAZID. [Concomitant]
     Active Substance: ISONIAZID
     Indication: DRUG PROVOCATION TEST
     Route: 048
  3. PYRAZINAMIDE. [Concomitant]
     Active Substance: PYRAZINAMIDE
     Indication: DRUG PROVOCATION TEST
  4. ETHAMBUTOL [Concomitant]
     Active Substance: ETHAMBUTOL HYDROCHLORIDE
     Indication: DRUG PROVOCATION TEST
     Route: 048
  5. ISONIAZID. [Concomitant]
     Active Substance: ISONIAZID
     Indication: DRUG PROVOCATION TEST
  6. PYRAZINAMIDE. [Concomitant]
     Active Substance: PYRAZINAMIDE
     Indication: TUBERCULOSIS
  7. RIFAMPICIN [Suspect]
     Active Substance: RIFAMPIN
     Indication: DRUG PROVOCATION TEST
     Route: 065
  8. ISONIAZID. [Concomitant]
     Active Substance: ISONIAZID
     Indication: DRUG PROVOCATION TEST
  9. PYRAZINAMIDE. [Concomitant]
     Active Substance: PYRAZINAMIDE
     Indication: DRUG PROVOCATION TEST
  10. KANAMYCIN [Concomitant]
     Active Substance: KANAMYCIN\KANAMYCIN A SULFATE
     Indication: TUBERCULOSIS
  11. MOXIFLOXACIN HYDROCHLORIDE. [Suspect]
     Active Substance: MOXIFLOXACIN HYDROCHLORIDE
     Indication: TUBERCULOSIS
     Route: 065
  12. PYRAZINAMIDE. [Concomitant]
     Active Substance: PYRAZINAMIDE
     Indication: TUBERCULOSIS
     Route: 048
  13. ISONIAZID. [Concomitant]
     Active Substance: ISONIAZID
     Indication: TUBERCULOSIS
  14. ETHAMBUTOL [Concomitant]
     Active Substance: ETHAMBUTOL HYDROCHLORIDE
     Indication: TUBERCULOSIS
  15. ETHAMBUTOL [Concomitant]
     Active Substance: ETHAMBUTOL HYDROCHLORIDE
     Indication: TUBERCULOSIS
     Route: 048
  16. TERIZIDONE [Concomitant]
     Active Substance: TERIZIDONE
     Indication: TUBERCULOSIS
  17. RIFAMPICIN [Suspect]
     Active Substance: RIFAMPIN
     Indication: TUBERCULOSIS
     Route: 048
  18. ISONIAZID. [Concomitant]
     Active Substance: ISONIAZID
     Indication: TUBERCULOSIS
  19. ISONIAZID. [Concomitant]
     Active Substance: ISONIAZID
     Indication: TUBERCULOSIS
     Route: 048
  20. PYRAZINAMIDE. [Concomitant]
     Active Substance: PYRAZINAMIDE
     Indication: TUBERCULOSIS
  21. ETHAMBUTOL [Concomitant]
     Active Substance: ETHAMBUTOL HYDROCHLORIDE
     Indication: DRUG PROVOCATION TEST
  22. RIFAMPICIN [Suspect]
     Active Substance: RIFAMPIN
     Indication: TUBERCULOSIS
     Route: 065
  23. PYRAZINAMIDE. [Concomitant]
     Active Substance: PYRAZINAMIDE
     Indication: DRUG PROVOCATION TEST
     Route: 048
  24. ETHAMBUTOL [Concomitant]
     Active Substance: ETHAMBUTOL HYDROCHLORIDE
     Indication: DRUG PROVOCATION TEST
  25. ETHAMBUTOL [Concomitant]
     Active Substance: ETHAMBUTOL HYDROCHLORIDE
     Indication: TUBERCULOSIS

REACTIONS (10)
  - Oedema [Recovered/Resolved]
  - Pyrexia [Recovered/Resolved]
  - Lymphocyte morphology abnormal [Recovered/Resolved]
  - Rash [Recovered/Resolved]
  - Alanine aminotransferase increased [Recovered/Resolved]
  - Pruritus [Recovered/Resolved]
  - Rash morbilliform [Recovered/Resolved]
  - Lymphadenopathy [Recovered/Resolved]
  - Hepatitis [Recovered/Resolved]
  - Drug reaction with eosinophilia and systemic symptoms [Recovered/Resolved]
